FAERS Safety Report 15822436 (Version 1)
Quarter: 2019Q1

REPORT INFORMATION
  Report Type: Spontaneous
  Country: TW (occurrence: TW)
  Receive Date: 20190114
  Receipt Date: 20190114
  Transmission Date: 20190417
  Serious: Yes (Other)
  Sender: FDA-Public Use
  Company Number: PHHY2019TW003553

PATIENT
  Age: 41 Year
  Sex: Female

DRUGS (1)
  1. ADALIMUMAB [Suspect]
     Active Substance: ADALIMUMAB
     Indication: PSORIATIC ARTHROPATHY
     Dosage: 40 MG, Q2W (EVERY OTHER WEEK)
     Route: 058

REACTIONS (9)
  - Neck pain [Recovering/Resolving]
  - Pyrexia [Unknown]
  - Lymphadenopathy [Unknown]
  - Swelling [Recovering/Resolving]
  - Palpitations [Unknown]
  - Tremor [Unknown]
  - Cough [Unknown]
  - Oropharyngeal pain [Unknown]
  - Thyroiditis subacute [Unknown]
